FAERS Safety Report 25320339 (Version 1)
Quarter: 2025Q2

REPORT INFORMATION
  Report Type: Spontaneous
  Country: DZ (occurrence: DZ)
  Receive Date: 20250515
  Receipt Date: 20250515
  Transmission Date: 20250716
  Serious: Yes (Other)
  Sender: PFIZER
  Company Number: DZ-PFIZER INC-PV202500057804

PATIENT
  Age: 67 Year
  Sex: Female

DRUGS (1)
  1. LORLATINIB [Suspect]
     Active Substance: LORLATINIB
     Indication: Lung adenocarcinoma
     Dates: start: 202303

REACTIONS (2)
  - Hallucination, visual [Recovered/Resolved]
  - Optic neuritis [Recovered/Resolved]
